FAERS Safety Report 8030376-8 (Version None)
Quarter: 2012Q1

REPORT INFORMATION
  Report Type: 
  Country: None (occurrence: None)
  Receive Date: 20120109
  Receipt Date: 20120109
  Transmission Date: 20120608
  Serious: No
  Sender: FDA-Public Use
  Company Number: None

PATIENT
  Age: 66 Year
  Sex: Male
  Weight: 72.574 kg

DRUGS (1)
  1. HORIZANT [Suspect]
     Indication: NEURALGIA
     Dosage: 600 MG
     Dates: start: 20110818, end: 20111202

REACTIONS (3)
  - ARTHRALGIA [None]
  - MYALGIA [None]
  - BURNING SENSATION [None]
